FAERS Safety Report 25837663 (Version 1)
Quarter: 2025Q3

REPORT INFORMATION
  Report Type: Spontaneous
  Country: JP (occurrence: JP)
  Receive Date: 20250923
  Receipt Date: 20250923
  Transmission Date: 20251021
  Serious: Yes (Other)
  Sender: OTSUKA
  Company Number: JP-MMM-Otsuka-F1CELJ2P

PATIENT
  Age: 8 Decade
  Sex: Male

DRUGS (5)
  1. REXULTI [Suspect]
     Active Substance: BREXPIPRAZOLE
     Indication: Schizophrenia
     Dosage: 1MG/DAY
     Route: 048
     Dates: start: 20250808
  2. AMLODIPINE BESYLATE\AZILSARTAN [Concomitant]
     Active Substance: AMLODIPINE BESYLATE\AZILSARTAN
     Indication: Product used for unknown indication
     Route: 048
  3. FUROSEMIDE [Concomitant]
     Active Substance: FUROSEMIDE
     Indication: Product used for unknown indication
     Dosage: 20 MG/DAY
     Route: 048
  4. NESINA [Concomitant]
     Active Substance: ALOGLIPTIN BENZOATE
     Indication: Product used for unknown indication
     Dosage: 25 MG/DAY
     Route: 048
  5. CLOPIDOGREL BISULFATE [Concomitant]
     Active Substance: CLOPIDOGREL BISULFATE
     Indication: Product used for unknown indication
     Dosage: 75 MG/DAY
     Route: 048

REACTIONS (1)
  - Hallucination [Unknown]

NARRATIVE: CASE EVENT DATE: 20250903
